FAERS Safety Report 7053277-0 (Version None)
Quarter: 2010Q4

REPORT INFORMATION
  Report Type: 
  Country: None (occurrence: None)
  Receive Date: 20101020
  Receipt Date: 20101007
  Transmission Date: 20110411
  Serious: Yes (Other)
  Sender: FDA-Public Use
  Company Number: PHFR2010GB03320

PATIENT
  Sex: Male

DRUGS (6)
  1. CLOZARIL [Suspect]
     Indication: SCHIZOPHRENIA
     Dosage: UNK
     Route: 048
     Dates: start: 20030207
  2. CLOZARIL [Suspect]
     Dosage: 250 MG MANE, 300 MG NOCTE
     Route: 048
     Dates: start: 20070101
  3. SULPIRIDE [Concomitant]
     Indication: SCHIZOPHRENIA
     Dosage: 200 MG, BID
     Route: 048
     Dates: start: 20070101
  4. CITALOPRAM HYDROBROMIDE [Concomitant]
     Indication: DEPRESSION
     Dosage: 20 MG, QD
     Route: 048
     Dates: start: 20070101
  5. HYOSCINE HBR HYT [Concomitant]
     Indication: SALIVARY HYPERSECRETION
     Dosage: 600 UG, QD
     Route: 048
     Dates: start: 20070101
  6. RANITIDINE [Concomitant]
     Indication: DYSPEPSIA
     Dosage: 150 MG, QD
     Route: 048
     Dates: start: 20070101

REACTIONS (2)
  - HAEMOGLOBIN INCREASED [None]
  - PLATELET COUNT DECREASED [None]
